FAERS Safety Report 10427700 (Version 3)
Quarter: 2014Q4

REPORT INFORMATION
  Report Type: Spontaneous
  Country: US (occurrence: US)
  Receive Date: 20140903
  Receipt Date: 20141103
  Transmission Date: 20150528
  Serious: Yes (Hospitalization)
  Sender: FDA-Public Use
  Company Number: US-PFIZER INC-2014241189

PATIENT
  Age: 45 Year
  Sex: Female
  Weight: 91.16 kg

DRUGS (1)
  1. LYRICA [Suspect]
     Active Substance: PREGABALIN
     Indication: FIBROMYALGIA
     Dosage: 200 MG, 3X/DAY

REACTIONS (8)
  - Memory impairment [Unknown]
  - Panic attack [Unknown]
  - Back pain [Recovering/Resolving]
  - Pain [Unknown]
  - Tremor [Unknown]
  - Hypoaesthesia [Recovering/Resolving]
  - Loss of consciousness [Unknown]
  - Feeling abnormal [Unknown]
